FAERS Safety Report 21687551 (Version 1)
Quarter: 2022Q4

REPORT INFORMATION
  Report Type: Report from Study
  Country: AU (occurrence: AU)
  Receive Date: 20221206
  Receipt Date: 20221206
  Transmission Date: 20230113
  Serious: Yes (Other)
  Sender: FDA-Public Use
  Company Number: AU-SUN PHARMACEUTICAL INDUSTRIES LTD-2022RR-367361

PATIENT
  Age: 17 Year
  Sex: Female

DRUGS (10)
  1. LURASIDONE [Suspect]
     Active Substance: LURASIDONE
     Indication: Depressive symptom
     Dosage: 40 MILLIGRAM, DAILY, FOR 9 MONTHS
     Route: 065
  2. LURASIDONE [Suspect]
     Active Substance: LURASIDONE
     Indication: Mood swings
  3. LURASIDONE [Suspect]
     Active Substance: LURASIDONE
     Indication: Aggression
  4. LURASIDONE [Suspect]
     Active Substance: LURASIDONE
     Indication: Agitation
  5. RISPERIDONE [Suspect]
     Active Substance: RISPERIDONE
     Indication: Aggression
     Dosage: 300 MICROGRAM, NOCTE, FOR OVER 1 YEAR
     Route: 065
  6. RISPERIDONE [Suspect]
     Active Substance: RISPERIDONE
     Indication: Agitation
  7. RISPERIDONE [Suspect]
     Active Substance: RISPERIDONE
     Indication: Depressive symptom
  8. CLONIDINE [Suspect]
     Active Substance: CLONIDINE
     Indication: Aggression
     Dosage: 300 MICROGRAM, NOCTE
     Route: 065
  9. CLONIDINE [Suspect]
     Active Substance: CLONIDINE
     Indication: Agitation
  10. CLONIDINE [Suspect]
     Active Substance: CLONIDINE
     Indication: Depressive symptom

REACTIONS (3)
  - Hyperprolactinaemia [Unknown]
  - Galactorrhoea [Unknown]
  - Therapeutic product effect incomplete [Unknown]
